FAERS Safety Report 8069680-6 (Version None)
Quarter: 2012Q1

REPORT INFORMATION
  Report Type: 
  Country: None (occurrence: None)
  Receive Date: 20120119
  Receipt Date: 20120113
  Transmission Date: 20120608
  Serious: Yes (Death)
  Sender: FDA-Public Use
  Company Number: SP05466

PATIENT
  Age: 73 Year
  Sex: Male

DRUGS (10)
  1. RELISTOR [Suspect]
     Indication: CONSTIPATION
     Dosage: (12 MG,ONCE),SUBCUTANEOUS
     Route: 058
     Dates: start: 20120105, end: 20120105
  2. LASIX [Concomitant]
  3. DILAUDID [Concomitant]
  4. MIRALAX [Concomitant]
  5. MS CONTIN [Concomitant]
  6. METOLAZONE [Concomitant]
  7. AVODART [Concomitant]
  8. POTASSIUM [Concomitant]
  9. FLOMAX [Concomitant]
  10. SYNTHROID [Concomitant]

REACTIONS (7)
  - SWELLING [None]
  - PAIN IN EXTREMITY [None]
  - HYPOTENSION [None]
  - METABOLIC ACIDOSIS [None]
  - CONSTIPATION [None]
  - HYPOVOLAEMIA [None]
  - ESCHERICHIA INFECTION [None]
